FAERS Safety Report 4691951-1 (Version None)
Quarter: 2005Q2

REPORT INFORMATION
  Report Type: 
  Country: None (occurrence: None)
  Receive Date: 20050614
  Receipt Date: 20050607
  Transmission Date: 20051028
  Serious: Yes (Death)
  Sender: FDA-Public Use
  Company Number: US-2005-006572

PATIENT
  Age: 52 Year
  Sex: Female
  Weight: 80.7 kg

DRUGS (7)
  1. BETASERON [Suspect]
     Indication: MULTIPLE SCLEROSIS
     Dosage: SUBCUTANEOUS
     Route: 058
     Dates: start: 19950224, end: 20031003
  2. COUMADIN [Concomitant]
  3. NORVASC                              /DEN / (AMLODIPINE) [Concomitant]
  4. POTASSIUM CHLORIDE [Concomitant]
  5. BACLOFEN [Concomitant]
  6. LASIX [Concomitant]
  7. KLONOPIN [Concomitant]

REACTIONS (2)
  - PULMONARY EMBOLISM [None]
  - THROMBOSIS [None]
